FAERS Safety Report 8462596-2 (Version None)
Quarter: 2012Q2

REPORT INFORMATION
  Report Type: 
  Country: None (occurrence: None)
  Receive Date: 20120625
  Receipt Date: 20120424
  Transmission Date: 20120825
  Serious: No
  Sender: FDA-Public Use
  Company Number: US-BAUSCH-2012BL002930

PATIENT
  Age: 7 Year
  Sex: Male

DRUGS (1)
  1. BESIVANCE [Suspect]
     Indication: CONJUNCTIVITIS
     Dates: start: 20120416, end: 20120419

REACTIONS (6)
  - OCULAR HYPERAEMIA [None]
  - EYELID OEDEMA [None]
  - ERYTHEMA OF EYELID [None]
  - EYELID MARGIN CRUSTING [None]
  - CONJUNCTIVITIS [None]
  - EYE IRRITATION [None]
